FAERS Safety Report 9012702 (Version 1)
Quarter: 2013Q1

REPORT INFORMATION
  Report Type: Spontaneous
  Country: ES (occurrence: ES)
  Receive Date: 20130114
  Receipt Date: 20130114
  Transmission Date: 20140127
  Serious: Yes (Hospitalization)
  Sender: FDA-Public Use
  Company Number: ES-MERCK-1301ESP002754

PATIENT
  Age: 57 Year
  Sex: Male

DRUGS (4)
  1. PEGINTRON [Suspect]
     Indication: CHRONIC HEPATITIS C
     Dosage: 120 MICROGRAM, QW
     Route: 058
     Dates: start: 20121005, end: 20121120
  2. TELAPREVIR [Suspect]
     Indication: CHRONIC HEPATITIS C
     Dosage: 750MG/8H
     Route: 048
     Dates: start: 20121005, end: 20121119
  3. RIBAVIRIN [Suspect]
     Indication: CHRONIC HEPATITIS C
     Route: 048
     Dates: start: 20121005, end: 20121120
  4. EUTIROX [Concomitant]
     Indication: AUTOIMMUNE THYROIDITIS
     Dosage: 125 MG, QD
     Route: 048

REACTIONS (1)
  - Drug reaction with eosinophilia and systemic symptoms [Recovering/Resolving]
